FAERS Safety Report 22168125 (Version 1)
Quarter: 2023Q2

REPORT INFORMATION
  Report Type: Spontaneous
  Country: US (occurrence: US)
  Receive Date: 20230403
  Receipt Date: 20230403
  Transmission Date: 20230722
  Serious: Yes (Other)
  Sender: FDA-Public Use
  Company Number: US-ANIPHARMA-2023-US-007617

PATIENT
  Age: 44 Year
  Sex: Male

DRUGS (2)
  1. PROCAINAMIDE HYDROCHLORIDE [Suspect]
     Active Substance: PROCAINAMIDE HYDROCHLORIDE
     Indication: Tachycardia
  2. AMIODARONE [Suspect]
     Active Substance: AMIODARONE
     Indication: Tachycardia

REACTIONS (1)
  - Pulseless electrical activity [Recovered/Resolved]
